FAERS Safety Report 5794596-5 (Version None)
Quarter: 2008Q2

REPORT INFORMATION
  Report Type: 
  Country: None (occurrence: None)
  Receive Date: 20080627
  Receipt Date: 20080627
  Transmission Date: 20081010
  Serious: Yes (Hospitalization)
  Sender: FDA-Public Use
  Company Number: None

PATIENT
  Sex: Male
  Weight: 81.6475 kg

DRUGS (13)
  1. CLINDAMYCIN [Suspect]
     Indication: PREOPERATIVE CARE
     Dosage: IV X 1 DOSE PRE-OP
     Route: 042
  2. VALIUM [Concomitant]
  3. BACLOFEN [Concomitant]
  4. B6 [Concomitant]
  5. VIT C [Concomitant]
  6. COLACE [Concomitant]
  7. IRON [Concomitant]
  8. PRILOSEC [Concomitant]
  9. DURAGESIC-100 [Concomitant]
  10. LEVOXYL [Concomitant]
  11. BACTRIM [Concomitant]
  12. ZOLOFT [Concomitant]
  13. M.V.I. [Concomitant]

REACTIONS (4)
  - BODY TEMPERATURE INCREASED [None]
  - RASH PRURITIC [None]
  - SWELLING [None]
  - VASCULITIS [None]
